FAERS Safety Report 8625547-3 (Version None)
Quarter: 2012Q3

REPORT INFORMATION
  Report Type: 
  Country: None (occurrence: None)
  Receive Date: 20120827
  Receipt Date: 20120730
  Transmission Date: 20120928
  Serious: Yes (Death)
  Sender: FDA-Public Use
  Company Number: CN-ROCHE-1101953

PATIENT

DRUGS (1)
  1. ALTEPLASE [Suspect]
     Indication: ISCHAEMIC STROKE
     Dosage: MAXIMUM 50 MG
     Route: 042

REACTIONS (1)
  - LOWER RESPIRATORY TRACT INFECTION [None]
